FAERS Safety Report 16803054 (Version 4)
Quarter: 2020Q1

REPORT INFORMATION
  Report Type: Spontaneous
  Country: JP (occurrence: JP)
  Receive Date: 20190913
  Receipt Date: 20200309
  Transmission Date: 20200409
  Serious: Yes (Death, Hospitalization, Other)
  Sender: FDA-Public Use
  Company Number: JP-BRISTOL-MYERS SQUIBB COMPANY-BMS-2017-038436

PATIENT
  Age: 68 Year
  Sex: Male
  Weight: 59 kg

DRUGS (5)
  1. BACTRAMIN [Concomitant]
     Active Substance: SULFAMETHOXAZOLE\TRIMETHOPRIM
     Indication: PROPHYLAXIS
     Dosage: 1 DOSAGE FORM EVERYDAY
     Route: 048
     Dates: start: 20170317, end: 20170405
  2. BONOTEO [Concomitant]
     Active Substance: MINODRONIC ACID
     Indication: PROPHYLAXIS
     Dosage: 50 MILLIGRAM, Q4WK
     Route: 048
     Dates: start: 20170317
  3. OPDIVO [Suspect]
     Active Substance: NIVOLUMAB
     Indication: NON-SMALL CELL LUNG CANCER
     Dosage: 3 MG/KG, UNK
     Route: 041
     Dates: start: 20170127, end: 20170210
  4. MAGMITT [Concomitant]
     Active Substance: MAGNESIUM OXIDE
     Indication: PROPHYLAXIS
     Dosage: 330 MILLIGRAM, Q8H
     Route: 048
     Dates: start: 20170327, end: 20170405
  5. NEXIUM [Concomitant]
     Active Substance: ESOMEPRAZOLE MAGNESIUM
     Indication: PROPHYLAXIS
     Dosage: 10 MILLIGRAM EVERYDAY
     Route: 048
     Dates: start: 20170316, end: 20170316

REACTIONS (5)
  - Asthenia [Fatal]
  - Interstitial lung disease [Recovering/Resolving]
  - Sepsis [Fatal]
  - Colitis [Fatal]
  - Cellulitis [Unknown]

NARRATIVE: CASE EVENT DATE: 20170227
